FAERS Safety Report 20248720 (Version 2)
Quarter: 2022Q1

REPORT INFORMATION
  Report Type: Report from Study
  Country: US (occurrence: US)
  Receive Date: 20211229
  Receipt Date: 20220119
  Transmission Date: 20220424
  Serious: Yes (Hospitalization, Other)
  Sender: FDA-Public Use
  Company Number: US-ABBVIE-21P-163-4173397-00

PATIENT
  Age: 77 Year
  Sex: Male
  Weight: 105.6 kg

DRUGS (3)
  1. IBRUTINIB [Suspect]
     Active Substance: IBRUTINIB
     Indication: Chronic lymphocytic leukaemia
     Dosage: FOR 15 CYCLES
     Route: 048
     Dates: start: 20201001, end: 20211007
  2. VENETOCLAX [Suspect]
     Active Substance: VENETOCLAX
     Indication: Chronic lymphocytic leukaemia
     Dosage: 20MG D 1-7 C3; 50MG D 8-14 C3; 100MG D 15-21; 200MG D 22-28 C3; 400MG D 1-28 C4-14
     Route: 048
     Dates: start: 20210806, end: 20211007
  3. OBINUTUZUMAB [Concomitant]
     Active Substance: OBINUTUZUMAB
     Indication: Chronic lymphocytic leukaemia
     Dosage: 100MG C1D1; 900MG C1D2; 1000MG C1D8+15, C2-6D1
     Route: 042
     Dates: start: 20201001, end: 20210219

REACTIONS (7)
  - Sepsis [Not Recovered/Not Resolved]
  - Pulmonary embolism [Not Recovered/Not Resolved]
  - Cholecystitis [Not Recovered/Not Resolved]
  - Hypotension [Not Recovered/Not Resolved]
  - Anal abscess [Not Recovered/Not Resolved]
  - Necrotising fasciitis [Not Recovered/Not Resolved]
  - Urinary tract infection [Not Recovered/Not Resolved]

NARRATIVE: CASE EVENT DATE: 20211019
